FAERS Safety Report 6130112-6 (Version None)
Quarter: 2009Q1

REPORT INFORMATION
  Report Type: 
  Country: None (occurrence: None)
  Receive Date: 20090324
  Receipt Date: 20090317
  Transmission Date: 20090719
  Serious: Yes (Life-Threatening, Other)
  Sender: FDA-Public Use
  Company Number: DE-BRISTOL-MYERS SQUIBB COMPANY-14544191

PATIENT
  Age: 71 Year
  Sex: Female
  Weight: 54 kg

DRUGS (1)
  1. IXEMPRA KIT [Suspect]
     Indication: BREAST CANCER METASTATIC
     Route: 042
     Dates: start: 20090206

REACTIONS (6)
  - DIARRHOEA [None]
  - NEUTROPENIC SEPSIS [None]
  - POLYNEUROPATHY [None]
  - PULMONARY EMBOLISM [None]
  - RENAL FAILURE [None]
  - THROMBOCYTOPENIA [None]
